FAERS Safety Report 22617116 (Version 1)
Quarter: 2023Q2

REPORT INFORMATION
  Report Type: Report from Study
  Country: US (occurrence: US)
  Receive Date: 20230620
  Receipt Date: 20230620
  Transmission Date: 20230721
  Serious: Yes (Hospitalization, Other)
  Sender: FDA-Public Use
  Company Number: US-ABBVIE-5295288

PATIENT
  Age: 73 Year
  Sex: Female

DRUGS (1)
  1. HUMIRA [Suspect]
     Active Substance: ADALIMUMAB
     Indication: Crohn^s disease
     Route: 058

REACTIONS (6)
  - Ileocaecal resection [Unknown]
  - Back pain [Unknown]
  - Dysstasia [Unknown]
  - Gait disturbance [Unknown]
  - Mobility decreased [Unknown]
  - Nerve compression [Unknown]

NARRATIVE: CASE EVENT DATE: 20230330
